FAERS Safety Report 8413940-3 (Version None)
Quarter: 2012Q2

REPORT INFORMATION
  Report Type: 
  Country: None (occurrence: None)
  Receive Date: 20120605
  Receipt Date: 20120531
  Transmission Date: 20120825
  Serious: Yes (Hospitalization, Other)
  Sender: FDA-Public Use
  Company Number: SE-JNJFOC-20120521203

PATIENT
  Sex: Male

DRUGS (7)
  1. GLIPIZIDE [Concomitant]
     Route: 065
  2. BETOLVIDON [Concomitant]
     Route: 065
  3. DURAGESIC-100 [Suspect]
     Indication: MALIGNANT NEOPLASM OF THORAX
     Route: 062
     Dates: start: 20120411, end: 20120412
  4. UNKNOWN MEDICATION [Suspect]
     Indication: MALIGNANT NEOPLASM OF THORAX
     Dosage: 5MG AT NIGHT
     Route: 065
     Dates: start: 20120321, end: 20120419
  5. ENALAPRIL MALEATE [Concomitant]
     Route: 065
  6. MORPHINE SULFATE [Suspect]
     Indication: MALIGNANT NEOPLASM OF THORAX
     Dosage: 20 MG PER DAY
     Route: 048
     Dates: start: 20120321, end: 20120408
  7. ALVEDON [Concomitant]
     Route: 065

REACTIONS (6)
  - HYDRONEPHROSIS [None]
  - BACK PAIN [None]
  - CONSTIPATION [None]
  - FAECALOMA [None]
  - MALAISE [None]
  - WEIGHT DECREASED [None]
